FAERS Safety Report 5970880-7 (Version None)
Quarter: 2008Q4

REPORT INFORMATION
  Report Type: 
  Country: None (occurrence: None)
  Receive Date: 20081128
  Receipt Date: 20081117
  Transmission Date: 20090506
  Serious: Yes (Hospitalization, Other)
  Sender: FDA-Public Use
  Company Number: PHHY2008JP29542

PATIENT
  Age: 90 Year

DRUGS (10)
  1. VOLTAREN [Suspect]
     Indication: PYREXIA
     Dosage: 12.5 MG/DAY
     Route: 054
  2. ONEALFA [Concomitant]
     Dosage: 0.5 MG UNK
     Route: 048
  3. ALDACTONE [Concomitant]
     Dosage: 25 MG UNK
     Route: 048
  4. MEVALOTIN [Concomitant]
     Dosage: 10 MG UNK
     Route: 048
  5. PREDONINE [Concomitant]
     Dosage: 5 MG UNK
     Route: 048
  6. ASPARA-CA [Concomitant]
     Route: 048
  7. MUCOSTA [Concomitant]
     Dosage: UNK
     Route: 048
  8. URINORM [Concomitant]
     Route: 048
  9. LENDORMIN [Concomitant]
     Route: 048
  10. ENSURE H [Concomitant]
     Route: 048

REACTIONS (1)
  - URINARY RETENTION [None]
